FAERS Safety Report 8465816 (Version 4)
Quarter: 2012Q4

REPORT INFORMATION
  Report Type: 
  Country: SE (occurrence: SE)
  Receive Date: 20120319
  Receipt Date: 20121206
  Transmission Date: 20130627
  Serious: Yes (Other)
  Sender: FDA-Public Use
  Company Number: PHHY2012SE022818

PATIENT
  Age: 46 Year
  Sex: Female

DRUGS (12)
  1. CLOZAPINE [Suspect]
     Route: 048
  2. LEPONEX [Suspect]
     Route: 048
  3. CLOZAPINE ACTAVIS [Suspect]
     Route: 048
  4. METOPROLOL [Concomitant]
  5. OMEPRAZOLE [Concomitant]
  6. TROMBYL [Concomitant]
  7. ALVEDON [Concomitant]
  8. ERGENYL [Concomitant]
  9. PARGITAN [Concomitant]
  10. OXASCAND [Concomitant]
  11. SALURES [Concomitant]
  12. STESOLID [Concomitant]

REACTIONS (7)
  - Aggression [Recovered/Resolved]
  - Psychotic disorder [Recovered/Resolved]
  - Hallucination [Recovered/Resolved]
  - Self injurious behaviour [Recovered/Resolved]
  - Spinal fracture [Recovered/Resolved]
  - General physical health deterioration [Recovered/Resolved]
  - Fatigue [Recovered/Resolved]
